FAERS Safety Report 4674249-7 (Version None)
Quarter: 2005Q2

REPORT INFORMATION
  Report Type: 
  Country: None (occurrence: None)
  Receive Date: 20050526
  Receipt Date: 20050516
  Transmission Date: 20051028
  Serious: Yes (Death)
  Sender: FDA-Public Use
  Company Number: US-JNJFOC-20050405564

PATIENT
  Sex: Female
  Weight: 77.34 kg

DRUGS (12)
  1. REMINYL [Suspect]
     Route: 065
  2. REMINYL [Suspect]
     Indication: DEMENTIA
     Route: 065
  3. ZYPREXA [Concomitant]
     Indication: SCHIZOAFFECTIVE DISORDER
     Dosage: OVER 5 YEARS
     Route: 065
  4. DEPAKOTE [Concomitant]
     Indication: SCHIZOAFFECTIVE DISORDER
     Dosage: OVER 5 YEARS
     Route: 065
  5. LEXAPRO [Concomitant]
     Indication: DEPRESSION
     Dosage: OVER 2 YEARS
     Route: 065
  6. LIPITOR [Concomitant]
     Dosage: OVER 2 YEARS
     Route: 065
  7. OSCAL [Concomitant]
     Indication: OSTEOPOROSIS
     Dosage: OVER 2 YEARS
     Route: 065
  8. VITAMIN E [Concomitant]
     Indication: TARDIVE DYSKINESIA
     Dosage: OVER 5 YEARS
     Route: 065
  9. ASPIRIN [Concomitant]
     Indication: PROPHYLAXIS
     Dosage: OVER 5 YEARS
     Route: 065
  10. DSS [Concomitant]
     Indication: CONSTIPATION
     Dosage: OVER 2 YEARS
     Route: 065
  11. TYLENOL (CAPLET) [Concomitant]
     Indication: PAIN
     Dosage: AS NEEDED
     Route: 065
  12. MOM [Concomitant]
     Indication: CONSTIPATION
     Dosage: 15-30 CC QHS DAILY PRN
     Route: 065

REACTIONS (1)
  - DEATH [None]
